FAERS Safety Report 9776837 (Version 3)
Quarter: 2015Q4

REPORT INFORMATION
  Report Type: Spontaneous
  Country: JP (occurrence: JP)
  Receive Date: 20131221
  Receipt Date: 20151113
  Transmission Date: 20160305
  Serious: Yes (Hospitalization, Other)
  Sender: FDA-Public Use
  Company Number: PHHY2013JP149099

PATIENT
  Age: 63 Year
  Sex: Female

DRUGS (13)
  1. PACLITAXEL. [Concomitant]
     Active Substance: PACLITAXEL
     Indication: LIVER DISORDER
     Dosage: 70 MG
     Route: 065
     Dates: start: 20130705, end: 20131025
  2. FEMARA [Suspect]
     Active Substance: LETROZOLE
     Indication: BREAST CANCER
     Dosage: 2.5 MG, QD
     Route: 048
     Dates: start: 20131108
  3. LOXONIN [Suspect]
     Active Substance: LOXOPROFEN SODIUM
     Indication: MUSCULOSKELETAL PAIN
  4. HERCEPTIN [Suspect]
     Active Substance: TRASTUZUMAB
     Indication: BREAST CANCER
     Dosage: 8 MG/KG (INTRODUCTION DOSE WAS 248 MG AND THE MAINTENANCE DOSE WAS 186 MG), UNK
     Route: 041
  5. HERCEPTIN [Suspect]
     Active Substance: TRASTUZUMAB
     Dosage: 8 MG/KG, UNK
     Route: 041
     Dates: start: 20150320, end: 20150320
  6. LOXONIN [Suspect]
     Active Substance: LOXOPROFEN SODIUM
     Indication: BREAST CANCER
     Dosage: 60 MG, QD
     Route: 048
  7. LOXONIN [Suspect]
     Active Substance: LOXOPROFEN SODIUM
     Indication: HEADACHE
     Dosage: 180 MG, QD
     Route: 048
     Dates: start: 20131108, end: 20131129
  8. HERCEPTIN [Suspect]
     Active Substance: TRASTUZUMAB
     Dosage: 6 MG/KG, UNK
     Route: 041
  9. PACLITAXEL. [Concomitant]
     Active Substance: PACLITAXEL
     Dosage: 70 MG, BID
     Route: 065
     Dates: start: 20150418
  10. HERCEPTIN [Suspect]
     Active Substance: TRASTUZUMAB
     Dosage: 6 MG/KG, UNK
     Route: 041
     Dates: start: 20140224, end: 20141215
  11. HERCEPTIN [Suspect]
     Active Substance: TRASTUZUMAB
     Dosage: 6 MG/KG, UNK
     Route: 041
     Dates: start: 20150410, end: 20150410
  12. PACLITAXEL. [Concomitant]
     Active Substance: PACLITAXEL
     Dosage: UNK
     Route: 065
     Dates: start: 20150611
  13. HEPARIN [Concomitant]
     Active Substance: HEPARIN SODIUM
     Indication: DIALYSIS
     Route: 065

REACTIONS (28)
  - Rash [Unknown]
  - Pleural effusion [Unknown]
  - Breast mass [Unknown]
  - Decreased appetite [Recovered/Resolved]
  - Oedema peripheral [Unknown]
  - Conjunctival haemorrhage [Unknown]
  - Malaise [Unknown]
  - Eosinophil count increased [Recovering/Resolving]
  - Back pain [Unknown]
  - Compression fracture [Unknown]
  - Abdominal distension [Unknown]
  - Blood creatinine increased [Unknown]
  - Proteinuria [Unknown]
  - Pyrexia [Recovered/Resolved]
  - Tubulointerstitial nephritis [Recovered/Resolved with Sequelae]
  - Haematuria [Unknown]
  - Primary adrenal insufficiency [Unknown]
  - Hepatic cirrhosis [Unknown]
  - Glomerulonephritis rapidly progressive [Unknown]
  - Fall [Unknown]
  - Musculoskeletal stiffness [Unknown]
  - Arthralgia [Unknown]
  - Chronic kidney disease [Unknown]
  - Ascites [Unknown]
  - Renal impairment [Unknown]
  - Renal failure [Unknown]
  - Pain [Unknown]
  - Blood pressure decreased [Unknown]

NARRATIVE: CASE EVENT DATE: 201311
